FAERS Safety Report 22313254 (Version 1)
Quarter: 2023Q2

REPORT INFORMATION
  Report Type: Spontaneous
  Country: JP (occurrence: JP)
  Receive Date: 20230512
  Receipt Date: 20230512
  Transmission Date: 20230722
  Serious: Yes (Other)
  Sender: FDA-Public Use
  Company Number: JP-SA-SAC20230511000859

PATIENT
  Age: 63 Year
  Sex: Male

DRUGS (1)
  1. OXALIPLATIN [Suspect]
     Active Substance: OXALIPLATIN
     Dosage: UNK
     Route: 042

REACTIONS (4)
  - Adrenal insufficiency [Unknown]
  - Pneumonitis [Unknown]
  - Neuropathy peripheral [Unknown]
  - Rash [Unknown]
